FAERS Safety Report 22237926 (Version 2)
Quarter: 2023Q2

REPORT INFORMATION
  Report Type: Spontaneous
  Country: US (occurrence: US)
  Receive Date: 20230421
  Receipt Date: 20230426
  Transmission Date: 20230722
  Serious: No
  Sender: FDA-Public Use
  Company Number: US-LUPIN PHARMACEUTICALS INC.-2023-02971

PATIENT

DRUGS (4)
  1. DESVENLAFAXINE SUCCINATE [Suspect]
     Active Substance: DESVENLAFAXINE SUCCINATE
     Indication: Depression
     Dosage: 100 MG (4-5 WEEKS AGO)
     Route: 065
  2. DESVENLAFAXINE SUCCINATE [Suspect]
     Active Substance: DESVENLAFAXINE SUCCINATE
     Dosage: 25 MG (STOPPED 3 WEEKS AGO)
     Route: 065
  3. PAPAIN [Concomitant]
     Active Substance: PAPAIN
     Indication: Allergic sinusitis
     Dosage: UNK
     Route: 065
  4. XYZAL [Concomitant]
     Active Substance: LEVOCETIRIZINE DIHYDROCHLORIDE
     Indication: Allergic sinusitis
     Dosage: UNK
     Route: 065

REACTIONS (14)
  - Blood pressure increased [Unknown]
  - Anxiety [Not Recovered/Not Resolved]
  - Discomfort [Recovering/Resolving]
  - Restlessness [Recovering/Resolving]
  - Bruxism [Recovering/Resolving]
  - Self-injurious ideation [Recovered/Resolved]
  - Nightmare [Not Recovered/Not Resolved]
  - Sleep disorder [Not Recovered/Not Resolved]
  - Fatigue [Recovering/Resolving]
  - Chest pain [Recovering/Resolving]
  - Dyspnoea [Recovering/Resolving]
  - Feeling abnormal [Recovering/Resolving]
  - Increased appetite [Not Recovered/Not Resolved]
  - Weight increased [Recovering/Resolving]
